FAERS Safety Report 8829940 (Version 1)
Quarter: 2012Q4

REPORT INFORMATION
  Report Type: 
  Country: CH (occurrence: CH)
  Receive Date: 20121008
  Receipt Date: 20121008
  Transmission Date: 20130627
  Serious: Yes (Death, Hospitalization)
  Sender: FDA-Public Use
  Company Number: CH-ASTRAZENECA-2012SE75950

PATIENT
  Age: 77 Year
  Sex: Female

DRUGS (13)
  1. NEXIUM [Suspect]
     Indication: GASTROOESOPHAGEAL REFLUX DISEASE
     Route: 048
     Dates: start: 20120320
  2. CIPROFLOXACINE [Suspect]
     Indication: PERITONITIS GONOCOCCAL
     Route: 048
     Dates: start: 20120315, end: 20120322
  3. CIPROFLOXACINE [Suspect]
     Indication: GENITOURINARY TRACT GONOCOCCAL INFECTION
     Route: 048
     Dates: start: 20120315, end: 20120322
  4. ASPIRIN [Concomitant]
     Route: 048
     Dates: start: 20120310
  5. CALCIPARINE [Concomitant]
     Dosage: 5000 UL TWICE DAILY
     Route: 058
     Dates: start: 20120314
  6. XANAX [Concomitant]
     Dates: start: 20120315
  7. SORTIS [Concomitant]
     Route: 048
     Dates: start: 20120310
  8. DEXAMETHASON [Concomitant]
     Route: 048
     Dates: start: 20120320
  9. DAFALGAN [Concomitant]
     Route: 048
     Dates: start: 20120310
  10. VALTREX [Concomitant]
     Route: 048
     Dates: start: 20120310
  11. CALCIMAGON D3 [Concomitant]
     Route: 048
     Dates: start: 20120315
  12. BETOPIC [Concomitant]
     Route: 061
     Dates: start: 20120310
  13. TEMGESIC [Concomitant]
     Route: 060
     Dates: start: 20120320

REACTIONS (4)
  - Clostridium colitis [Fatal]
  - Sepsis [Fatal]
  - Renal failure acute [Fatal]
  - Plasmacytoma [Fatal]
